FAERS Safety Report 13371705 (Version 3)
Quarter: 2018Q3

REPORT INFORMATION
  Report Type: Spontaneous
  Country: CO (occurrence: CO)
  Receive Date: 20170325
  Receipt Date: 20180803
  Transmission Date: 20181010
  Serious: Yes (Hospitalization, Other)
  Sender: FDA-Public Use
  Company Number: CO-AMGEN-COLSP2017044870

PATIENT
  Age: 75 Year
  Sex: Female

DRUGS (1)
  1. ENBREL [Suspect]
     Active Substance: ETANERCEPT
     Indication: RHEUMATOID ARTHRITIS
     Dosage: 50 MG, WEEKLY
     Route: 058
     Dates: start: 2011, end: 201703

REACTIONS (9)
  - Disease progression [Recovering/Resolving]
  - Scoliosis [Recovering/Resolving]
  - Gastric disorder [Unknown]
  - Intestinal obstruction [Recovering/Resolving]
  - Gait disturbance [Recovering/Resolving]
  - Vomiting [Unknown]
  - Haemorrhage [Unknown]
  - Spinal column stenosis [Recovering/Resolving]
  - Sciatica [Unknown]

NARRATIVE: CASE EVENT DATE: 20170313
